FAERS Safety Report 23855540 (Version 1)
Quarter: 2024Q2

REPORT INFORMATION
  Report Type: Spontaneous
  Country: GB (occurrence: GB)
  Receive Date: 20240514
  Receipt Date: 20240514
  Transmission Date: 20240716
  Serious: No
  Sender: FDA-Public Use
  Company Number: None

PATIENT
  Age: 81 Year
  Sex: Male
  Weight: 65 kg

DRUGS (2)
  1. AVODART [Suspect]
     Active Substance: DUTASTERIDE
     Indication: Nocturia
     Dosage: 0.5 MG, QD
     Route: 065
     Dates: start: 202309
  2. FIXAPOST [Concomitant]
     Indication: Ocular hypertension
     Route: 047

REACTIONS (3)
  - Change of bowel habit [Not Recovered/Not Resolved]
  - Skin irritation [Unknown]
  - Condition aggravated [Unknown]

NARRATIVE: CASE EVENT DATE: 20230901
